FAERS Safety Report 21516334 (Version 1)
Quarter: 2022Q4

REPORT INFORMATION
  Report Type: Report from Study
  Country: US (occurrence: US)
  Receive Date: 20221027
  Receipt Date: 20221027
  Transmission Date: 20230112
  Serious: Yes (Hospitalization, Other)
  Sender: FDA-Public Use
  Company Number: US-CELGENE-USA-20220104853

PATIENT
  Age: 77 Year
  Sex: Male
  Weight: 108.8 kg

DRUGS (3)
  1. REVLIMID [Suspect]
     Active Substance: LENALIDOMIDE
     Indication: Mantle cell lymphoma
     Dosage: FREQUENCY TEXT: NOT PROVIDED
     Route: 048
  2. ACALABRUTINIB [Suspect]
     Active Substance: ACALABRUTINIB
     Indication: Mantle cell lymphoma
     Dosage: FREQUENCY TEXT: NOT PROVIDED?RESTARTED ACALABRUTINIB ONLY ON 02-MAR-2022
     Route: 065
  3. RITUXIMAB [Suspect]
     Active Substance: RITUXIMAB
     Indication: Mantle cell lymphoma
     Dosage: FREQUENCY TEXT: NOT PROVIDED
     Route: 065

REACTIONS (6)
  - COVID-19 [Unknown]
  - Malignant melanoma [Unknown]
  - Basal cell carcinoma [Unknown]
  - Disorientation [Unknown]
  - Deep vein thrombosis [Unknown]
  - Fall [Unknown]

NARRATIVE: CASE EVENT DATE: 20220116
